FAERS Safety Report 5863343-0 (Version None)
Quarter: 2008Q3

REPORT INFORMATION
  Report Type: 
  Country: None (occurrence: None)
  Receive Date: 20080828
  Receipt Date: 20080820
  Transmission Date: 20090109
  Serious: Yes (Other)
  Sender: FDA-Public Use
  Company Number: PHHY2008JP18738

PATIENT
  Age: 58 Year
  Sex: Male

DRUGS (4)
  1. NEORAL [Suspect]
     Indication: BONE MARROW TRANSPLANT
     Route: 065
  2. METHOTREXATE [Suspect]
     Indication: BONE MARROW TRANSPLANT
     Route: 065
  3. FLUDARABINE PHOSPHATE [Suspect]
     Indication: BONE MARROW TRANSPLANT
     Route: 065
  4. BUSULFAN [Suspect]
     Indication: BONE MARROW TRANSPLANT
     Route: 065

REACTIONS (2)
  - EOSINOPHILIC PNEUMONIA ACUTE [None]
  - GRAFT VERSUS HOST DISEASE [None]
